FAERS Safety Report 5015383-1 (Version None)
Quarter: 2006Q2

REPORT INFORMATION
  Report Type: 
  Country: None (occurrence: None)
  Receive Date: 20060601
  Receipt Date: 20060521
  Transmission Date: 20061013
  Serious: Yes (Hospitalization)
  Sender: FDA-Public Use
  Company Number: IL-JNJFOC-20060504793

PATIENT
  Age: 11 Year
  Sex: Female
  Weight: 70 kg

DRUGS (3)
  1. CONCERTA [Suspect]
     Route: 048
  2. CONCERTA [Suspect]
     Route: 048
  3. CONCERTA [Suspect]
     Route: 048

REACTIONS (4)
  - EYE PAIN [None]
  - HEADACHE [None]
  - NAUSEA [None]
  - VOMITING [None]
